FAERS Safety Report 10682688 (Version 1)
Quarter: 2014Q4

REPORT INFORMATION
  Report Type: Spontaneous
  Country: US (occurrence: None)
  Receive Date: 20141229
  Receipt Date: 20141229
  Transmission Date: 20150529
  Serious: Yes (Other)
  Sender: FDA-Public Use
  Company Number: None

PATIENT
  Age: 37 Year
  Sex: Male
  Weight: 95.26 kg

DRUGS (2)
  1. DULOXETINE [Suspect]
     Active Substance: DULOXETINE
     Indication: DEPRESSION
     Dosage: 1 PILL ONCE DAILY TAKEN BY MOUTH
     Route: 048
     Dates: start: 20141219, end: 20141221
  2. DULOXETINE [Suspect]
     Active Substance: DULOXETINE
     Indication: ANXIETY
     Dosage: 1 PILL ONCE DAILY TAKEN BY MOUTH
     Route: 048
     Dates: start: 20141219, end: 20141221

REACTIONS (6)
  - Pallor [None]
  - Nausea [None]
  - Pyrexia [None]
  - Urticaria [None]
  - Product substitution issue [None]
  - Paraesthesia [None]

NARRATIVE: CASE EVENT DATE: 20141219
